FAERS Safety Report 23469029 (Version 1)
Quarter: 2024Q1

REPORT INFORMATION
  Report Type: Spontaneous
  Country: CN (occurrence: CN)
  Receive Date: 20240202
  Receipt Date: 20240202
  Transmission Date: 20240410
  Serious: Yes (Other)
  Sender: FDA-Public Use
  Company Number: CN-BAUSCHBL-2024BNL001097

PATIENT
  Age: 73 Year
  Sex: Male
  Weight: 60 kg

DRUGS (1)
  1. TIMOLOL MALEATE [Suspect]
     Active Substance: TIMOLOL MALEATE
     Indication: Intraocular pressure test abnormal
     Dosage: ONE DROPS EACH TIME
     Route: 047
     Dates: start: 20240111, end: 20240112

REACTIONS (3)
  - Heart rate decreased [Recovered/Resolved]
  - Discomfort [Recovered/Resolved]
  - Palpitations [Recovered/Resolved]

NARRATIVE: CASE EVENT DATE: 20240112
